FAERS Safety Report 25963469 (Version 1)
Quarter: 2025Q4

REPORT INFORMATION
  Report Type: Spontaneous
  Country: US (occurrence: None)
  Receive Date: 20251024
  Receipt Date: 20251024
  Transmission Date: 20260117
  Serious: Yes (Hospitalization)
  Sender: FDA-CTU
  Company Number: None

PATIENT
  Age: 67 Year
  Sex: Female
  Weight: 45 kg

DRUGS (2)
  1. WINREVAIR [Suspect]
     Active Substance: SOTATERCEPT-CSRK
     Indication: Pulmonary arterial hypertension
     Dosage: 0.7 ML; EVERY 3 WEEKS SUBCUTANEOUS?
     Route: 058
     Dates: start: 20240813
  2. midrodrine [Concomitant]

REACTIONS (3)
  - Dyspnoea [None]
  - Blood pressure decreased [None]
  - Full blood count abnormal [None]

NARRATIVE: CASE EVENT DATE: 20251001
